FAERS Safety Report 8062401-2 (Version None)
Quarter: 2012Q1

REPORT INFORMATION
  Report Type: 
  Country: None (occurrence: None)
  Receive Date: 20120123
  Receipt Date: 20120117
  Transmission Date: 20120608
  Serious: Yes (Other)
  Sender: FDA-Public Use
  Company Number: US-SANOFI-AVENTIS-2011SA082221

PATIENT
  Age: 51 Year
  Sex: Male

DRUGS (3)
  1. LANTUS [Suspect]
     Dosage: DOSE:50 UNIT(S)
     Route: 058
  2. NOVOLOG [Concomitant]
  3. SOLOSTAR [Suspect]

REACTIONS (2)
  - INJECTION SITE PAIN [None]
  - DIABETIC HYPERGLYCAEMIC COMA [None]
